FAERS Safety Report 19048690 (Version 2)
Quarter: 2021Q2

REPORT INFORMATION
  Report Type: Report from Study
  Country: CA (occurrence: CA)
  Receive Date: 20210323
  Receipt Date: 20210605
  Transmission Date: 20210717
  Serious: Yes (Other)
  Sender: FDA-Public Use
  Company Number: CA-TAKEDA-2021TUS016507

PATIENT
  Age: 52 Year
  Sex: Female

DRUGS (10)
  1. VEDOLIZUMAB [Suspect]
     Active Substance: VEDOLIZUMAB
     Dosage: 300 MILLIGRAM, Q4WEEKS
     Route: 042
     Dates: end: 20210512
  2. PREDNISONE. [Concomitant]
     Active Substance: PREDNISONE
     Dosage: 10 MILLIGRAM, QD
  3. METHOTREXATE. [Concomitant]
     Active Substance: METHOTREXATE
     Dosage: 12.5 MILLIGRAM
  4. ESCITALOPRAM [Concomitant]
     Active Substance: ESCITALOPRAM OXALATE
     Indication: DEPRESSION
     Dosage: 10 MILLIGRAM, QD
  5. HUMIRA [Concomitant]
     Active Substance: ADALIMUMAB
     Dosage: 40 MILLIGRAM, 1/WEEK
  6. FOLIC ACID. [Concomitant]
     Active Substance: FOLIC ACID
     Dosage: 5 MILLIGRAM, QD
  7. VEDOLIZUMAB [Suspect]
     Active Substance: VEDOLIZUMAB
     Dosage: 300 MILLIGRAM, Q4WEEKS
     Route: 042
     Dates: start: 20210320
  8. VEDOLIZUMAB [Suspect]
     Active Substance: VEDOLIZUMAB
     Indication: COLITIS ULCERATIVE
     Dosage: 300 MILLIGRAM
     Route: 042
     Dates: start: 20170630
  9. BUPROPION. [Concomitant]
     Active Substance: BUPROPION
     Indication: DEPRESSION
     Dosage: 300 MILLIGRAM, QD
  10. RISEDRONATE [Concomitant]
     Active Substance: RISEDRONATE SODIUM
     Indication: OSTEOPOROSIS
     Dosage: 35 MILLIGRAM, QD

REACTIONS (3)
  - Off label use [Unknown]
  - Treatment failure [Unknown]
  - Colitis ulcerative [Unknown]

NARRATIVE: CASE EVENT DATE: 20210320
